FAERS Safety Report 9973510 (Version 1)
Quarter: 2014Q1

REPORT INFORMATION
  Report Type: Spontaneous
  Country: US (occurrence: None)
  Receive Date: 20140128
  Receipt Date: 20140128
  Transmission Date: 20141002
  Serious: Yes (Hospitalization)
  Sender: FDA-Public Use
  Company Number: A-US2013-79374

PATIENT
  Age: 64 Year
  Sex: Male

DRUGS (3)
  1. TRACLEER [Suspect]
     Indication: PULMONARY ARTERIAL HYPERTENSION
     Route: 048
     Dates: start: 201007, end: 20130211
  2. SILDENAFIL (SILDENAFIL) [Concomitant]
     Route: 048
     Dates: start: 201107, end: 20130211
  3. TORASEMIDE (TORASEMIDE) [Concomitant]

REACTIONS (1)
  - Right ventricular failure [None]
